FAERS Safety Report 8495340-3 (Version None)
Quarter: 2012Q3

REPORT INFORMATION
  Report Type: 
  Country: None (occurrence: None)
  Receive Date: 20120709
  Receipt Date: 20120703
  Transmission Date: 20120928
  Serious: Yes (Other)
  Sender: FDA-Public Use
  Company Number: US-BAYER-2012-067522

PATIENT
  Age: 35 Year
  Sex: Female
  Weight: 114.74 kg

DRUGS (2)
  1. YAZ [Suspect]
  2. MIRENA [Concomitant]

REACTIONS (1)
  - PULMONARY EMBOLISM [None]
